FAERS Safety Report 4349764-6 (Version None)
Quarter: 2004Q2

REPORT INFORMATION
  Report Type: 
  Country: None (occurrence: None)
  Receive Date: 20040429
  Receipt Date: 20040302
  Transmission Date: 20050107
  Serious: Yes (Hospitalization, Other)
  Sender: FDA-Public Use
  Company Number: FR-BRISTOL-MYERS SQUIBB COMPANY-12524005

PATIENT
  Age: 49 Year
  Sex: Female

DRUGS (1)
  1. ELISOR [Suspect]
     Route: 048

REACTIONS (2)
  - IIIRD NERVE PARALYSIS [None]
  - MENINGIOMA [None]
